FAERS Safety Report 7925669-6 (Version None)
Quarter: 2011Q4

REPORT INFORMATION
  Report Type: 
  Country: None (occurrence: None)
  Receive Date: 20111118
  Receipt Date: 20110411
  Transmission Date: 20120403
  Serious: No
  Sender: FDA-Public Use
  Company Number: US-AMGEN-USASP2011019262

PATIENT
  Age: 69 Year
  Sex: Female

DRUGS (4)
  1. ENBREL [Suspect]
     Indication: SJOGREN'S SYNDROME
  2. TREXALL [Concomitant]
  3. ENBREL [Suspect]
     Indication: PSORIATIC ARTHROPATHY
     Dosage: 50 MG, QWK
     Dates: start: 20110204
  4. ENBREL [Suspect]
     Indication: PSORIASIS

REACTIONS (4)
  - CHONDROPATHY [None]
  - SJOGREN'S SYNDROME [None]
  - COUGH [None]
  - DRUG EFFECT DECREASED [None]
